FAERS Safety Report 9166114 (Version 1)
Quarter: 2013Q1

REPORT INFORMATION
  Report Type: Spontaneous
  Country: US (occurrence: None)
  Receive Date: 20130301
  Receipt Date: 20130301
  Transmission Date: 20140127
  Serious: Yes (Other)
  Sender: FDA-Public Use
  Company Number: VAL_01417_2013

PATIENT
  Sex: Male

DRUGS (6)
  1. METOPROLOL [Suspect]
     Indication: PRODUCT USED FOR UNKNOWN INDICATION
  2. TOPROL (NOT SPECIFIED) [Suspect]
     Indication: PRODUCT USED FOR UNKNOWN INDICATION
     Dates: start: 20130217
  3. LIPITOR (UNKNOWN) [Concomitant]
  4. LEVOTHYROXINE (UNKNOWN) [Concomitant]
  5. ASACOL (UNKNOWN) [Concomitant]
  6. AMITRIPTYLINE (UNKNOWN) [Concomitant]

REACTIONS (4)
  - Pharyngeal oedema [None]
  - Heart rate increased [None]
  - Malaise [None]
  - Wrong technique in drug usage process [None]
